FAERS Safety Report 9236350 (Version 3)
Quarter: 2013Q4

REPORT INFORMATION
  Report Type: Spontaneous
  Country: US (occurrence: None)
  Receive Date: 20121031
  Receipt Date: 20131226
  Transmission Date: 20140711
  Serious: Yes (Hospitalization, Other)
  Sender: FDA-Public Use
  Company Number: PHEH2012US012187

PATIENT
  Age: 40 Year
  Sex: Female
  Weight: 59 kg

DRUGS (17)
  1. GILENYA [Suspect]
     Indication: MULTIPLE SCLEROSIS
     Route: 048
     Dates: start: 20110912
  2. ZANAFLEX (TIZANIDINE HYDROCHLORIDE) [Concomitant]
  3. FERROUS SULPHATE (FERROUS SULFATE) [Concomitant]
  4. FLONASE (FLUTICASONE PROPIONATE) SPRAY [Concomitant]
  5. MOTRIN (IBUPROFEN) [Concomitant]
  6. PROVIGIL (MODAFINIL) 200MG [Concomitant]
  7. RELPAX (ELETRIPTAN HYDROBROMIDE), 20MG [Concomitant]
  8. NEURONTIN (GABAPENTIN), 1000MG [Concomitant]
  9. NUEDEXTA (DEXTROMETHORPHAN HYDROBROMIDE, QUINIDINE SULFATE), 20/10MG [Concomitant]
  10. LEXAPRO (ESCITALOPRAM OXALATE), 600 MG [Concomitant]
  11. ALBUTEROL (SALBUTAMOL) [Concomitant]
  12. GABAPENTIN (GABAPENTIN) [Concomitant]
  13. LIDODERM (LIDOCAINE) [Concomitant]
  14. MODAFINIL (MODAFINIL) [Concomitant]
  15. ACETAMINOPHEN W/OXYCODONE (OXYCODONE HYDROCHLORIDE, PARACETAMOL) [Concomitant]
  16. TIZANIDINE HYDROCHLORIDE (TIZANIDINE HYDROCHLORIDE) [Concomitant]
  17. VENTOLIN HFA (SALBUTAMOL SULFATE) AEROSOL (SPRAY AND INHALATION) [Concomitant]

REACTIONS (9)
  - Multiple sclerosis relapse [None]
  - Depression [None]
  - Balance disorder [None]
  - Asthenia [None]
  - Pain in extremity [None]
  - Burning sensation [None]
  - Paraesthesia [None]
  - Progressive multiple sclerosis [None]
  - Accident [None]
